FAERS Safety Report 9521524 (Version 2)
Quarter: 2013Q4

REPORT INFORMATION
  Report Type: Spontaneous
  Country: US (occurrence: US)
  Receive Date: 20130913
  Receipt Date: 20131002
  Transmission Date: 20140711
  Serious: Yes (Other)
  Sender: FDA-Public Use
  Company Number: US-NAPPMUNDI-USA-2013-0106244

PATIENT
  Sex: Female

DRUGS (2)
  1. OXYCONTIN (NDA 22-272) [Suspect]
     Indication: PRODUCT USED FOR UNKNOWN INDICATION
     Dosage: 60 MG, TID
     Route: 048
  2. ATACAND [Concomitant]
     Indication: HYPERTENSION
     Route: 048

REACTIONS (4)
  - Intestinal obstruction [Unknown]
  - Hernia [Unknown]
  - Abdominal distension [Unknown]
  - Vomiting [Unknown]
